FAERS Safety Report 24378225 (Version 2)
Quarter: 2024Q4

REPORT INFORMATION
  Report Type: Spontaneous
  Country: GB (occurrence: GB)
  Receive Date: 20240930
  Receipt Date: 20241007
  Transmission Date: 20250115
  Serious: Yes (Hospitalization, Other)
  Sender: MYLAN
  Company Number: GB-MYLANLABS-2024M1086885

PATIENT
  Age: 37 Year
  Sex: Female

DRUGS (34)
  1. CLOZARIL [Suspect]
     Active Substance: CLOZAPINE
     Indication: Schizophrenia
     Dosage: UNK
     Route: 048
     Dates: start: 20080820
  2. CLOZARIL [Suspect]
     Active Substance: CLOZAPINE
     Dosage: UNK (CLOZAPINE 12.5MG ORODISPERSIBLE TABLETS SUGAR FREE NOT FOR ISSUE - TAKE AS PER CLOZAPINE CLINIC
     Route: 048
     Dates: start: 20220907
  3. GLYCOPYRROLATE [Concomitant]
     Active Substance: GLYCOPYRROLATE
     Dosage: 1 DOSAGE FORM, QD (INHALE THE CONTENTS OF ONE CAPSULE ONCE DAILY, AT THE SAME TIME OF DAY; LAST ISSU
     Route: 055
  4. COCODAMOL [Concomitant]
     Active Substance: ACETAMINOPHEN\CODEINE PHOSPHATE
     Indication: Constipation
     Dosage: UNK, PRN (ONE OR TWO TO BE TAKEN FOUR TIMES A DAY WHEN REQUIRED, LAST ISSUED ON 16-SEP-2024)
     Route: 065
  5. COCODAMOL [Concomitant]
     Active Substance: ACETAMINOPHEN\CODEINE PHOSPHATE
     Dosage: UNK, PRN (ONE OR TWO TO BE TAKEN FOUR TIMES A DAY WHEN REQUIRED. MONITOR FOR CONSTIPATION AND STOP T
     Route: 065
  6. DIAZEPAM [Concomitant]
     Active Substance: DIAZEPAM
     Dosage: UNK, QD (TAKE ONE OR TWO TABLETS DAILY AS REQUIRED, TRY TO USE AS LITTLE AS POSSIBLE, LAST ISSUED ON
     Route: 065
  7. DIAZEPAM [Concomitant]
     Active Substance: DIAZEPAM
     Dosage: UNK, QD (TAKE ONE OR TWO TABLETS DAILY AS REQUIRED, TRY TO USE AS LITTLE AS POSSIBLE, 14 TABLET, LAS
     Route: 065
  8. IBUPROFEN [Concomitant]
     Active Substance: IBUPROFEN
     Dosage: UNK (APPLY UP TO THREE TIMES A DAY, 100 GRAM)
     Route: 065
  9. TRULICITY [Concomitant]
     Active Substance: DULAGLUTIDE
     Dosage: 4.5 MILLIGRAM, QW (TO REMAIN AT 4.5MG WEEKLY, LAST ISSUED ON 12-SEP-2024)
     Route: 065
  10. ARIPIPRAZOLE [Concomitant]
     Active Substance: ARIPIPRAZOLE
     Dosage: 2 DOSAGE FORM, QD (TWO TO BE TAKEN EACH DAY, LAST ISSUED ON 28-AUG-2024)
     Route: 065
  11. ARIPIPRAZOLE [Concomitant]
     Active Substance: ARIPIPRAZOLE
     Dosage: 2 DOSAGE FORM, QD (TWO TO BE TAKEN EACH DAY, LAST ISSUED ON 23-SEP-2024, QUANTITY: 56 TABLET)
     Route: 065
  12. MIRTAZAPINE [Concomitant]
     Active Substance: MIRTAZAPINE
     Dosage: 1 DOSAGE FORM, HS (ONE TO BE TAKEN AT NIGHT, LAST ISSUED ON 28-AUG-2024)
     Route: 065
  13. MIRTAZAPINE [Concomitant]
     Active Substance: MIRTAZAPINE
     Dosage: 1 DOSAGE FORM, HS (ONE TO BE TAKEN AT NIGHT, LAST ISSUED ON 23-SEP-2024, QUANTITY: 28 TABLET)
     Route: 065
  14. BETAHISTINE [Concomitant]
     Active Substance: BETAHISTINE
     Dosage: 1 DOSAGE FORM, TID (ONE TO BE TAKEN THREE TIMES A DAY, LAST ISSUED ON 28-AUG-2024)
     Route: 065
  15. BETAHISTINE [Concomitant]
     Active Substance: BETAHISTINE
     Dosage: 1 DOSAGE FORM, TID (ONE TO BE TAKEN THREE TIMES A DAY, LAST ISSUED ON 23-SEP-2024. QUANTITY: 84 TABL
     Route: 065
  16. BECLOMETHASONE DIPROPIONATE [Concomitant]
     Active Substance: BECLOMETHASONE DIPROPIONATE
     Dosage: UNK, BID (TWO PUFFS TO BE INHALED TWICE A DAY, LAST ISSUED ON 28-AUG-2024)
     Route: 055
  17. BECLOMETHASONE DIPROPIONATE [Concomitant]
     Active Substance: BECLOMETHASONE DIPROPIONATE
     Dosage: UNK, BID (TWO PUFFS TO BE INHALED TWICE A DAY, LAST ISSUED ON 23-SEP-2024. QUANTITY: 1 X 200 DOSE)
     Route: 055
  18. MIRABEGRON [Concomitant]
     Active Substance: MIRABEGRON
     Dosage: 1 DOSAGE FORM, QD (ONE TO BE TAKEN EACH DAY. THIS TABLET REPLACES OXYBUTANIN, LAST ISSUED ON 28-AUG-
     Route: 065
  19. MIRABEGRON [Concomitant]
     Active Substance: MIRABEGRON
     Dosage: 1 DOSAGE FORM, QD (ONE TO BE TAKEN EACH DAY. THIS TABLET REPLACES OXYBUTANIN, LAST ISSUED ON 23-SEP-
     Route: 065
  20. PROPRANOLOL [Concomitant]
     Active Substance: PROPRANOLOL HYDROCHLORIDE
     Dosage: UNK, PRN (ONE AS NEEDED NO MORE THAN THREE TIMES A DAY, LAST ISSUED ON 28-AUG-2024)
     Route: 065
  21. PROPRANOLOL [Concomitant]
     Active Substance: PROPRANOLOL HYDROCHLORIDE
     Dosage: UNK, PRN (ONE AS NEEDED NO MORE THAN THREE TIMES A DAY, LAST ISSUED ON 23-SEP-2024, QUANTITY: 84 TAB
     Route: 065
  22. ASPIRIN [Concomitant]
     Active Substance: ASPIRIN
     Dosage: 1 DOSAGE FORM, QD (ONE TO BE TAKEN EACH DAY, LAST ISSUED ON 28-AUG-2024)
     Route: 065
  23. ASPIRIN [Concomitant]
     Active Substance: ASPIRIN
     Dosage: 1 DOSAGE FORM, QD (ONE TO BE TAKEN EACH DAY, LAST ISSUED ON 23-SEP-2024, QUANTITY: 28 TABLET)
     Route: 065
  24. SERTRALINE [Concomitant]
     Active Substance: SERTRALINE HYDROCHLORIDE
     Dosage: 2 DOSAGE FORM, QD (2 TO BE TAKEN EACH DAY AS PSYCHIATRIST SUGGESTS, LAST ISSUED ON 28-AUG-2024)
     Route: 065
  25. SERTRALINE [Concomitant]
     Active Substance: SERTRALINE HYDROCHLORIDE
     Dosage: 2 DOSAGE FORM, QD (2 TO BE TAKEN EACH DAY AS PSYCHIATRIST SUGGESTS, LAST ISSUED ON 23-SEP-2024, QUAN
     Route: 065
  26. OMEPRAZOLE [Concomitant]
     Active Substance: OMEPRAZOLE
     Dosage: UNK, BID (TWICE A DAY, LAST ISSUED ON 28-AUG-2024))
     Route: 065
  27. OMEPRAZOLE [Concomitant]
     Active Substance: OMEPRAZOLE
     Dosage: UNK, BID (TWICE A DAY, LAST ISSUED ON 23-SEP-2024, QUANTITY: 56 CAPSULE)
     Route: 065
  28. GLICLAZIDE [Concomitant]
     Active Substance: GLICLAZIDE
     Dosage: 2 DOSAGE FORM, BID (TWO TO BE TAKEN TWICE A DAY WITH FOOD, LAST ISSUED ON 28-AUG-2024)
     Route: 065
  29. GLICLAZIDE [Concomitant]
     Active Substance: GLICLAZIDE
     Dosage: 2 DOSAGE FORM, BID (TWO TO BE TAKEN TWICE A DAY WITH FOOD, LAST ISSUED ON 23-SEP-2024, QUANTITY: 112
     Route: 065
  30. ATORVASTATIN [Concomitant]
     Active Substance: ATORVASTATIN
     Dosage: UNK, QD (NOCTE, LAST ISSUED ON 28-AUG-2024)
     Route: 065
  31. ATORVASTATIN [Concomitant]
     Active Substance: ATORVASTATIN
     Dosage: UNK, QD (NOCTE, LAST ISSUED ON 23-SEP-2024, QUANTITY: 28 TABLET)
     Route: 065
  32. EASYHALER [Concomitant]
     Dosage: UNK, PRN (ONE OR TWO PUFFS TO BE INHALED FOUR TIMES A DAY WHEN REQUIRED, LAST ISSUED ON 23-AUG-2024,
     Route: 055
  33. TOUJEO [Concomitant]
     Active Substance: INSULIN GLARGINE
     Dosage: UNK (AS DIRECTED BY DIABETIC CLINIC, 300UNITS/ML SOLUTION FOR INJECTION 1.5ML PRE-FILLED SOLOSTAR PE
     Route: 065
  34. POLYETHYLENE GLYCOLS [Concomitant]
     Active Substance: POLYETHYLENE GLYCOLS
     Indication: Constipation
     Dosage: UNK, PRN (TWO-THREE TIMES A DAY AS NEEDED, LAST ISSUED ON 17-JUL-2024, QUANTITY: 84 SACHET)
     Route: 065

REACTIONS (34)
  - Hospitalisation [Not Recovered/Not Resolved]
  - Suicidal ideation [Unknown]
  - Angiomyolipoma [Unknown]
  - Schizophrenia [Unknown]
  - Cataract nuclear [Unknown]
  - Intestinal obstruction [Unknown]
  - Type 2 diabetes mellitus [Unknown]
  - Insulin-requiring type 2 diabetes mellitus [Unknown]
  - Hallucination, auditory [Recovered/Resolved]
  - Small intestinal obstruction [Recovered/Resolved]
  - Intentional self-injury [Unknown]
  - Arrhythmia [Unknown]
  - Chronic obstructive pulmonary disease [Unknown]
  - Decreased appetite [Unknown]
  - Vitamin D deficiency [Unknown]
  - Obesity [Unknown]
  - Urinary incontinence [Unknown]
  - Cholelithiasis [Unknown]
  - Gastroenteritis [Not Recovered/Not Resolved]
  - Tooth extraction [Recovered/Resolved]
  - Blood urine present [Recovered/Resolved]
  - Panic attack [Unknown]
  - Blood creatinine decreased [Recovering/Resolving]
  - Red blood cell count increased [Not Recovered/Not Resolved]
  - Urine albumin/creatinine ratio increased [Recovering/Resolving]
  - Neutrophil count increased [Unknown]
  - Red cell distribution width increased [Unknown]
  - White blood cell count increased [Unknown]
  - Blood alkaline phosphatase increased [Unknown]
  - Alanine aminotransferase increased [Unknown]
  - Vomiting [Unknown]
  - Diarrhoea [Unknown]
  - Abdominal pain [Unknown]
  - Dizziness [Unknown]

NARRATIVE: CASE EVENT DATE: 20081217
